FAERS Safety Report 10888259 (Version 1)
Quarter: 2015Q1

REPORT INFORMATION
  Report Type: Other
  Country: GB (occurrence: GB)
  Receive Date: 20150304
  Receipt Date: 20150304
  Transmission Date: 20150721
  Serious: Yes (Disabling, Other)
  Sender: FDA-Public Use
  Company Number: GB-MYLANLABS-2015M1005376

PATIENT

DRUGS (8)
  1. KELP                               /01045501/ [Concomitant]
     Active Substance: FUCUS VESICULOSUS
     Dosage: UNK
  2. MAGNESIUM [Concomitant]
     Active Substance: MAGNESIUM
     Dosage: UNK
  3. MULTIVITAMIN                       /00097801/ [Concomitant]
     Active Substance: VITAMINS
     Dosage: UNK
  4. GINKGO BILOBA [Concomitant]
     Active Substance: GINKGO
     Dosage: UNK
  5. COENZYME Q10 [Concomitant]
     Active Substance: UBIDECARENONE
     Dosage: UNK
  6. GABAPENTIN. [Suspect]
     Active Substance: GABAPENTIN
     Indication: FIBROMYALGIA
     Dosage: 300 MG, TID
     Route: 048
     Dates: end: 20150210
  7. VITAMIN B12 [Concomitant]
     Active Substance: CYANOCOBALAMIN
     Dosage: UNK
  8. VITAMIN D3 [Concomitant]
     Active Substance: CHOLECALCIFEROL
     Dosage: UNK

REACTIONS (16)
  - Depression [Recovering/Resolving]
  - Chest pain [Unknown]
  - Drug withdrawal syndrome [Unknown]
  - Wheezing [Unknown]
  - Abdominal distension [Recovering/Resolving]
  - Decreased interest [Unknown]
  - Palpitations [Unknown]
  - Feeling abnormal [Recovering/Resolving]
  - Insomnia [Recovering/Resolving]
  - Alopecia [Recovering/Resolving]
  - Headache [Unknown]
  - Mood altered [Recovering/Resolving]
  - Anxiety [Recovering/Resolving]
  - Skin atrophy [Recovering/Resolving]
  - Nausea [Recovering/Resolving]
  - Paraesthesia [Unknown]

NARRATIVE: CASE EVENT DATE: 201311
